FAERS Safety Report 22608591 (Version 1)
Quarter: 2023Q2

REPORT INFORMATION
  Report Type: Other
  Country: US (occurrence: None)
  Receive Date: 20230616
  Receipt Date: 20230616
  Transmission Date: 20230722
  Serious: Yes (Other)
  Sender: FDA-Public Use
  Company Number: US-ROCHE-3368886

PATIENT

DRUGS (6)
  1. RITUXIMAB [Suspect]
     Active Substance: RITUXIMAB
     Indication: Acute lymphocytic leukaemia
     Dosage: ON DAY 1 OR 5
     Route: 042
  2. ETOPOSIDE [Suspect]
     Active Substance: ETOPOSIDE
     Indication: Acute lymphocytic leukaemia
     Dosage: ON DAYS 1-4 OVER ~96 HOUR
     Route: 042
  3. DOXORUBICIN [Suspect]
     Active Substance: DOXORUBICIN
     Indication: Acute lymphocytic leukaemia
     Dosage: ON DAYS 1-4 OVER ~96 HOUR
     Route: 042
  4. VINCRISTINE [Suspect]
     Active Substance: VINCRISTINE
     Indication: Acute lymphocytic leukaemia
     Dosage: ON DAYS 1-4 OVER ~96 HOUR
     Route: 042
  5. CYCLOPHOSPHAMIDE [Suspect]
     Active Substance: CYCLOPHOSPHAMIDE
     Indication: Acute lymphocytic leukaemia
     Dosage: OVER 1 HOUR ON DAY 5
     Route: 042
  6. PREDNISONE [Suspect]
     Active Substance: PREDNISONE
     Indication: Acute lymphocytic leukaemia
     Dosage: ON DAYS 1-5
     Route: 048

REACTIONS (24)
  - Febrile neutropenia [Unknown]
  - Alanine aminotransferase increased [Unknown]
  - Hypokalaemia [Unknown]
  - Hyperglycaemia [Unknown]
  - Aspartate aminotransferase increased [Unknown]
  - Hyponatraemia [Unknown]
  - Multiple organ dysfunction syndrome [Unknown]
  - Headache [Unknown]
  - Vascular access complication [Unknown]
  - Embolism [Unknown]
  - Respiratory failure [Unknown]
  - Presyncope [Unknown]
  - Penile pain [Unknown]
  - Confusional state [Unknown]
  - Hypophosphataemia [Unknown]
  - Methaemoglobinaemia [Unknown]
  - Tumour lysis syndrome [Unknown]
  - Blood creatinine increased [Unknown]
  - Urinary incontinence [Unknown]
  - International normalised ratio increased [Unknown]
  - Muscular weakness [Unknown]
  - Infusion related reaction [Unknown]
  - Dermatitis acneiform [Unknown]
  - Encephalopathy [Unknown]
